FAERS Safety Report 6862236-X (Version None)
Quarter: 2010Q3

REPORT INFORMATION
  Report Type: 
  Country: None (occurrence: None)
  Receive Date: 20100719
  Receipt Date: 20100702
  Transmission Date: 20110219
  Serious: No
  Sender: FDA-Public Use
  Company Number: A-US2010-36696

PATIENT
  Age: 46 Year
  Sex: Female

DRUGS (6)
  1. TRACLEER [Suspect]
     Indication: PULMONARY ARTERIAL HYPERTENSION
     Dosage: 62.5 MG, BID, ORAL, 62.5 MG, QD, 62.5 MG, BID
     Route: 048
     Dates: start: 20100401, end: 20100401
  2. TRACLEER [Suspect]
     Indication: PULMONARY ARTERIAL HYPERTENSION
     Dosage: 62.5 MG, BID, ORAL, 62.5 MG, QD, 62.5 MG, BID
     Route: 048
     Dates: start: 20100415, end: 20100401
  3. TRACLEER [Suspect]
     Indication: PULMONARY ARTERIAL HYPERTENSION
     Dosage: 62.5 MG, BID, ORAL, 62.5 MG, QD, 62.5 MG, BID
     Route: 048
     Dates: start: 20100409, end: 20100411
  4. TRACLEER [Suspect]
     Indication: PULMONARY ARTERIAL HYPERTENSION
     Dosage: 62.5 MG, BID, ORAL, 62.5 MG, QD, 62.5 MG, BID
     Route: 048
     Dates: start: 20100412, end: 20100414
  5. TRACLEER [Suspect]
     Indication: PULMONARY ARTERIAL HYPERTENSION
     Dosage: 62.5 MG, BID, ORAL, 62.5 MG, QD, 62.5 MG, BID
     Route: 048
     Dates: start: 20100401, end: 20100430
  6. TRACLEER [Suspect]
     Indication: PULMONARY ARTERIAL HYPERTENSION
     Dosage: 62.5 MG, BID, ORAL, 62.5 MG, QD, 62.5 MG, BID
     Route: 048
     Dates: start: 20100504, end: 20100513

REACTIONS (7)
  - ASTHENIA [None]
  - DIZZINESS [None]
  - FLUID RETENTION [None]
  - NAUSEA [None]
  - OEDEMA PERIPHERAL [None]
  - VISUAL IMPAIRMENT [None]
  - VOMITING [None]
